FAERS Safety Report 20077887 (Version 1)
Quarter: 2021Q4

REPORT INFORMATION
  Report Type: Spontaneous
  Country: FR (occurrence: FR)
  Receive Date: 20211116
  Receipt Date: 20211116
  Transmission Date: 20220303
  Serious: Yes (Death)
  Sender: FDA-Public Use
  Company Number: None

PATIENT
  Age: 91 Year
  Sex: Male
  Weight: 83 kg

DRUGS (4)
  1. MEROPENEM [Suspect]
     Active Substance: MEROPENEM
     Indication: Infection
     Dosage: UNK
     Route: 042
  2. LINEZOLID [Suspect]
     Active Substance: LINEZOLID
     Indication: Infection
     Dosage: 600 MILLIGRAM
     Route: 048
  3. PANTOPRAZOLE [Suspect]
     Active Substance: PANTOPRAZOLE
     Indication: Prophylaxis
     Dosage: 40 MILLIGRAM
     Route: 042
  4. CALCIPARINE [Suspect]
     Active Substance: HEPARIN CALCIUM
     Indication: Prophylaxis
     Dosage: 2 DOSAGE FORM, 5000UI / 0.2ML ONE INJECTION MORNING AND EVENING
     Route: 058

REACTIONS (1)
  - Eosinophilia [Fatal]

NARRATIVE: CASE EVENT DATE: 20210716
